FAERS Safety Report 5698885-4 (Version None)
Quarter: 2008Q2

REPORT INFORMATION
  Report Type: 
  Country: None (occurrence: None)
  Receive Date: 20080408
  Receipt Date: 20060719
  Transmission Date: 20081010
  Serious: No
  Sender: FDA-Public Use
  Company Number: US-BAYER-US-2006-019667

PATIENT
  Age: 59 Year
  Sex: Male
  Weight: 124 kg

DRUGS (3)
  1. ULTRAVIST (PHARMACY BULK) [Suspect]
     Indication: COMPUTERISED TOMOGRAM ABDOMEN
     Dosage: UNIT DOSE: 150 ML
     Route: 042
     Dates: start: 20060719, end: 20060719
  2. CONTRAST MEDIA [Concomitant]
     Route: 048
     Dates: start: 20060719, end: 20060719
  3. NO CONCOMITANT MEDICATION [Concomitant]

REACTIONS (1)
  - URTICARIA [None]
